FAERS Safety Report 5819243-5 (Version None)
Quarter: 2008Q3

REPORT INFORMATION
  Report Type: 
  Country: None (occurrence: None)
  Receive Date: 20080723
  Receipt Date: 20080711
  Transmission Date: 20090109
  Serious: Yes (Other)
  Sender: FDA-Public Use
  Company Number: IN-ROCHE-574915

PATIENT
  Age: 17 Year
  Sex: Male

DRUGS (2)
  1. TRETINOIN [Suspect]
     Dosage: DRUG STOPPED ON DAY 9 OF THERAPY.
     Route: 065
  2. TRETINOIN [Suspect]
     Dosage: DRUG RESTARTED AFTER 3 DAYS.
     Route: 065

REACTIONS (2)
  - NECROTISING FASCIITIS [None]
  - SCROTAL ULCER [None]
